FAERS Safety Report 6894149-1 (Version None)
Quarter: 2010Q3

REPORT INFORMATION
  Report Type: 
  Country: None (occurrence: None)
  Receive Date: 20100802
  Receipt Date: 20100723
  Transmission Date: 20110219
  Serious: Yes (Hospitalization)
  Sender: FDA-Public Use
  Company Number: IT-JNJFOC-20100708725

PATIENT
  Age: 76 Year
  Sex: Male

DRUGS (7)
  1. DITROPAN [Suspect]
     Indication: BLADDER SPASM
     Route: 048
  2. CIPROFLOXACIN HCL [Suspect]
     Indication: HAEMATURIA
     Dosage: EXTENDED RELEASE
     Route: 048
  3. ESOMEPRAZOLE MAGNESIUM [Suspect]
     Indication: PEPTIC ULCER
     Dosage: EXTENDED RELEASE
     Route: 048
  4. RAMIPRIL [Concomitant]
     Indication: HYPERTENSION
     Route: 048
  5. FINASTID [Concomitant]
     Indication: BENIGN PROSTATIC HYPERPLASIA
     Route: 048
  6. PRADIF [Concomitant]
     Indication: BENIGN PROSTATIC HYPERPLASIA
     Route: 048
  7. ENOXAPARIN SODIUM [Concomitant]
     Indication: THROMBOSIS PROPHYLAXIS
     Route: 048

REACTIONS (1)
  - URTICARIA [None]
